FAERS Safety Report 25209691 (Version 2)
Quarter: 2025Q2

REPORT INFORMATION
  Report Type: Spontaneous
  Country: AU (occurrence: AU)
  Receive Date: 20250417
  Receipt Date: 20250428
  Transmission Date: 20250716
  Serious: Yes (Hospitalization, Other)
  Sender: MYLAN
  Company Number: AU-MYLANLABS-2025M1026675

PATIENT
  Age: 48 Year
  Sex: Female

DRUGS (14)
  1. CLOZARIL [Suspect]
     Active Substance: CLOZAPINE
     Indication: Schizophrenia
  2. CLOZARIL [Suspect]
     Active Substance: CLOZAPINE
  3. CLOZARIL [Suspect]
     Active Substance: CLOZAPINE
     Dosage: UNK, BID (UPTITRATED TO 50MG MANE AND 150MG NOCTE)
     Dates: start: 20250316
  4. CLOZARIL [Suspect]
     Active Substance: CLOZAPINE
     Dosage: 50 MILLIGRAM, AM (MANE)
     Dates: start: 20250317, end: 20250317
  5. ZUCLOPENTHIXOL [Concomitant]
     Active Substance: ZUCLOPENTHIXOL
     Dosage: 10 MILLIGRAM, BID (ON ADMISSION)
  6. ZUCLOPENTHIXOL [Concomitant]
     Active Substance: ZUCLOPENTHIXOL
     Dosage: 10 MILLIGRAM, PM (NOCTE) (REDUCED DOSE)
     Dates: start: 20250309, end: 20250314
  7. BENZTROPINE [Concomitant]
     Active Substance: BENZTROPINE
     Dosage: 2 MILLIGRAM, BID (PRIOR TO ADMISSION)
  8. BENZTROPINE [Concomitant]
     Active Substance: BENZTROPINE
     Dosage: 1 MILLIGRAM, BID (REDUCED ON ADMISSION)
  9. BENZTROPINE [Concomitant]
     Active Substance: BENZTROPINE
     Dosage: 1 MILLIGRAM, AM (MANE) (DOWN-TITRATED AS ZUCLOPENTHIXOL DOWN-TITRATED)
     Dates: start: 20250319, end: 20250325
  10. PROPRANOLOL HYDROCHLORIDE [Concomitant]
     Active Substance: PROPRANOLOL HYDROCHLORIDE
     Dosage: 10 MILLIGRAM, BID (ON ADMISSION)
  11. PROPRANOLOL HYDROCHLORIDE [Concomitant]
     Active Substance: PROPRANOLOL HYDROCHLORIDE
     Dosage: 5 MILLIGRAM, BID (REDUCED)
     Dates: start: 20250311, end: 20250317
  12. IBUPROFEN [Concomitant]
     Active Substance: IBUPROFEN
  13. IBUPROFEN [Concomitant]
     Active Substance: IBUPROFEN
     Dates: start: 20250319, end: 20250319
  14. ENOXAPARIN [Concomitant]
     Active Substance: ENOXAPARIN
     Dates: start: 20250319, end: 20250320

REACTIONS (4)
  - Hospitalisation [Recovered/Resolved]
  - Myocarditis [Unknown]
  - Salivary hypersecretion [Unknown]
  - Viral infection [Unknown]

NARRATIVE: CASE EVENT DATE: 20250301
